FAERS Safety Report 7355415-9 (Version None)
Quarter: 2011Q1

REPORT INFORMATION
  Report Type: 
  Country: None (occurrence: None)
  Receive Date: 20110316
  Receipt Date: 20110314
  Transmission Date: 20110831
  Serious: Yes (Death, Hospitalization, Other)
  Sender: FDA-Public Use
  Company Number: US-AMGEN-USASP2011010901

PATIENT
  Age: 66 Year
  Sex: Female
  Weight: 89.796 kg

DRUGS (4)
  1. DECITABINE [Concomitant]
  2. NPLATE [Suspect]
     Indication: IDIOPATHIC THROMBOCYTOPENIC PURPURA
     Dates: start: 20080908, end: 20081002
  3. CORTICOSTEROIDS [Concomitant]
     Dosage: UNK
     Dates: start: 20080801
  4. RITUXIMAB [Concomitant]
     Dosage: UNK
     Dates: start: 20080801

REACTIONS (12)
  - DEATH [None]
  - DRUG INEFFECTIVE [None]
  - MYELODYSPLASTIC SYNDROME [None]
  - NEUTROPENIA [None]
  - SEPSIS [None]
  - METABOLIC ACIDOSIS [None]
  - ACUTE RESPIRATORY FAILURE [None]
  - CANDIDIASIS [None]
  - METABOLIC ALKALOSIS [None]
  - RESPIRATORY ACIDOSIS [None]
  - PANCYTOPENIA [None]
  - ANAPHYLACTIC REACTION [None]
